FAERS Safety Report 7245203-6 (Version None)
Quarter: 2011Q1

REPORT INFORMATION
  Report Type: 
  Country: None (occurrence: None)
  Receive Date: 20110126
  Receipt Date: 20110120
  Transmission Date: 20110831
  Serious: Yes (Other)
  Sender: FDA-Public Use
  Company Number: US-AMGEN-USASP2011003773

PATIENT
  Age: 36 Year
  Sex: Female

DRUGS (1)
  1. ENBREL [Suspect]
     Indication: RHEUMATOID ARTHRITIS
     Dates: start: 20110105

REACTIONS (5)
  - ANXIETY [None]
  - INJECTION SITE PAIN [None]
  - DEPRESSION [None]
  - PARANASAL SINUS DISCOMFORT [None]
  - SINUS CONGESTION [None]
